FAERS Safety Report 6152632-0 (Version None)
Quarter: 2009Q2

REPORT INFORMATION
  Report Type: 
  Country: None (occurrence: None)
  Receive Date: 20090409
  Receipt Date: 20090407
  Transmission Date: 20091009
  Serious: Yes (Death)
  Sender: FDA-Public Use
  Company Number: SP02318

PATIENT
  Age: 71 Year

DRUGS (1)
  1. OSMOPREP [Suspect]
     Indication: COLONOSCOPY
     Dosage: ORAL
     Route: 048
     Dates: start: 20090325, end: 20090326

REACTIONS (2)
  - CARDIO-RESPIRATORY ARREST [None]
  - FALL [None]
